FAERS Safety Report 5902683-3 (Version None)
Quarter: 2008Q3

REPORT INFORMATION
  Report Type: 
  Country: None (occurrence: None)
  Receive Date: 20080929
  Receipt Date: 20080929
  Transmission Date: 20090109
  Serious: No
  Sender: FDA-Public Use
  Company Number: None

PATIENT
  Age: 53 Year
  Sex: Female

DRUGS (1)
  1. LISINOPRIL [Suspect]

REACTIONS (4)
  - CHEST DISCOMFORT [None]
  - HEADACHE [None]
  - NERVOUSNESS [None]
  - UNEVALUABLE EVENT [None]
